FAERS Safety Report 18870109 (Version 1)
Quarter: 2021Q1

REPORT INFORMATION
  Report Type: Spontaneous
  Country: US (occurrence: US)
  Receive Date: 20210209
  Receipt Date: 20210209
  Transmission Date: 20210420
  Serious: Yes (Hospitalization)
  Sender: FDA-Public Use
  Company Number: US-ELI_LILLY_AND_COMPANY-US202102001057

PATIENT
  Age: 76 Year
  Sex: Female
  Weight: 73 kg

DRUGS (2)
  1. BAMLANIVIMAB 700MG [Suspect]
     Active Substance: BAMLANIVIMAB
     Indication: COVID-19
     Dosage: 700 MG, SINGLE
     Route: 041
     Dates: start: 20210122
  2. MEDROL [Concomitant]
     Active Substance: METHYLPREDNISOLONE
     Indication: COVID-19

REACTIONS (6)
  - Pain [Unknown]
  - Dyspnoea [Unknown]
  - Pyrexia [Unknown]
  - Diarrhoea [Unknown]
  - Cough [Unknown]
  - Hypoxia [Unknown]

NARRATIVE: CASE EVENT DATE: 20210123
